FAERS Safety Report 12891677 (Version 10)
Quarter: 2018Q4

REPORT INFORMATION
  Report Type: Report from Study
  Country: GB (occurrence: GB)
  Receive Date: 20161028
  Receipt Date: 20181009
  Transmission Date: 20190204
  Serious: Yes (Other)
  Sender: FDA-Public Use
  Company Number: GB-ROCHE-1844398

PATIENT
  Age: 59 Year
  Sex: Male
  Weight: 97 kg

DRUGS (82)
  1. ATEZOLIZUMAB. [Suspect]
     Active Substance: ATEZOLIZUMAB
     Indication: COLORECTAL CANCER METASTATIC
     Dosage: MOST RECENT DOSE OF ATEZOLIZUMAB WAS ADMINISTERED ON 27/MAY/2016 AT 13 35 HOUR PRIOR TO AE
     Route: 042
     Dates: start: 20160401
  2. CALCIUM GLUCONATE. [Concomitant]
     Active Substance: CALCIUM GLUCONATE
     Route: 065
     Dates: start: 20160229, end: 20160229
  3. DEXAMETHASONE. [Concomitant]
     Active Substance: DEXAMETHASONE
     Indication: PREMEDICATION
     Route: 065
     Dates: start: 20160301, end: 20160303
  4. DEXAMETHASONE. [Concomitant]
     Active Substance: DEXAMETHASONE
     Route: 065
     Dates: start: 20160130, end: 20160201
  5. DOMPERIDONE [Concomitant]
     Active Substance: DOMPERIDONE
     Route: 065
     Dates: start: 20160416, end: 20160420
  6. HYDROCORTISON [Concomitant]
     Active Substance: HYDROCORTISONE
     Route: 065
     Dates: start: 20160229, end: 20160229
  7. MAGNESIUM SULPHATE [Concomitant]
     Active Substance: MAGNESIUM SULFATE
     Route: 065
     Dates: start: 20160114, end: 20160114
  8. MAGNESIUM SULPHATE [Concomitant]
     Active Substance: MAGNESIUM SULFATE
     Route: 065
     Dates: start: 20160229, end: 20160229
  9. CAPECITABINE. [Suspect]
     Active Substance: CAPECITABINE
     Indication: COLORECTAL CANCER METASTATIC
     Dosage: 1000 MG/M^2 TWICE-DAILY ON DAY1 TO DAY 14 EVERY 2 WEEKS (PER PROTOCOL)?MOST RECENT DOSE 1500 MG OF C
     Route: 048
     Dates: start: 20160402, end: 20160816
  10. AMLODIPINE [Concomitant]
     Active Substance: AMLODIPINE BESYLATE
     Indication: HYPERTENSION
     Route: 065
     Dates: start: 20160412
  11. DEXAMETHASONE. [Concomitant]
     Active Substance: DEXAMETHASONE
     Route: 065
     Dates: start: 20151120, end: 20151120
  12. DEXAMETHASONE. [Concomitant]
     Active Substance: DEXAMETHASONE
     Route: 065
     Dates: start: 20151224, end: 20151224
  13. DEXAMETHASONE. [Concomitant]
     Active Substance: DEXAMETHASONE
     Route: 065
     Dates: start: 20151225, end: 20151227
  14. DOMPERIDONE [Concomitant]
     Active Substance: DOMPERIDONE
     Route: 065
     Dates: start: 20160402, end: 20160406
  15. GRANISETRON [Concomitant]
     Active Substance: GRANISETRON
     Route: 065
     Dates: start: 20160129, end: 20160129
  16. LOPERAMIDE [Concomitant]
     Active Substance: LOPERAMIDE
     Route: 065
     Dates: start: 20160213, end: 20160215
  17. CALCIUM GLUCONATE. [Concomitant]
     Active Substance: CALCIUM GLUCONATE
     Route: 065
     Dates: start: 20151211, end: 20151211
  18. DEXAMETHASONE. [Concomitant]
     Active Substance: DEXAMETHASONE
     Route: 065
     Dates: start: 20151106, end: 20151106
  19. DEXAMETHASONE. [Concomitant]
     Active Substance: DEXAMETHASONE
     Route: 065
     Dates: start: 20160212, end: 20160212
  20. DOMPERIDONE [Concomitant]
     Active Substance: DOMPERIDONE
     Route: 065
     Dates: start: 20151212, end: 20151214
  21. DOMPERIDONE [Concomitant]
     Active Substance: DOMPERIDONE
     Route: 065
     Dates: start: 20160430, end: 20160505
  22. DOMPERIDONE [Concomitant]
     Active Substance: DOMPERIDONE
     Route: 065
     Dates: start: 20160625, end: 20160629
  23. GRANISETRON [Concomitant]
     Active Substance: GRANISETRON
     Route: 065
     Dates: start: 20160212, end: 20160212
  24. GRANISETRON [Concomitant]
     Active Substance: GRANISETRON
     Route: 065
     Dates: start: 20151224, end: 20151224
  25. HYDROCORTISON [Concomitant]
     Active Substance: HYDROCORTISONE
     Indication: VISION BLURRED
     Route: 065
     Dates: start: 20151224
  26. LANSOPRAZOLE. [Concomitant]
     Active Substance: LANSOPRAZOLE
     Indication: CHEST PAIN
     Route: 065
     Dates: start: 20151120, end: 20161015
  27. LOPERAMIDE [Concomitant]
     Active Substance: LOPERAMIDE
     Route: 065
     Dates: start: 20151212, end: 20151214
  28. LOPERAMIDE [Concomitant]
     Active Substance: LOPERAMIDE
     Route: 065
     Dates: start: 20160625, end: 20160629
  29. MAGNESIUM SULPHATE [Concomitant]
     Active Substance: MAGNESIUM SULFATE
     Route: 065
     Dates: start: 20151224, end: 20151224
  30. CALCIUM GLUCONATE. [Concomitant]
     Active Substance: CALCIUM GLUCONATE
     Route: 065
     Dates: start: 20151120, end: 20151120
  31. CALCIUM GLUCONATE. [Concomitant]
     Active Substance: CALCIUM GLUCONATE
     Route: 065
     Dates: start: 20160212, end: 20160212
  32. CLEXANE [Concomitant]
     Active Substance: ENOXAPARIN SODIUM
     Indication: VISION BLURRED
     Route: 065
     Dates: start: 20151224, end: 20161015
  33. DOMPERIDONE [Concomitant]
     Active Substance: DOMPERIDONE
     Indication: NAUSEA
     Route: 065
     Dates: start: 20160709, end: 20160714
  34. DOMPERIDONE [Concomitant]
     Active Substance: DOMPERIDONE
     Route: 065
     Dates: start: 20151106, end: 20151106
  35. DOMPERIDONE [Concomitant]
     Active Substance: DOMPERIDONE
     Route: 065
     Dates: start: 20160528, end: 20160602
  36. DOMPERIDONE [Concomitant]
     Active Substance: DOMPERIDONE
     Route: 065
     Dates: start: 20160213, end: 20160215
  37. DOMPERIDONE [Concomitant]
     Active Substance: DOMPERIDONE
     Route: 065
     Dates: start: 20160416, end: 20160420
  38. GRANISETRON [Concomitant]
     Active Substance: GRANISETRON
     Route: 065
     Dates: start: 20151211, end: 20151211
  39. HYDROCORTISON [Concomitant]
     Active Substance: HYDROCORTISONE
     Route: 065
     Dates: start: 20160129, end: 20160129
  40. HYLO-FORTE [Concomitant]
     Active Substance: HYALURONATE SODIUM
     Indication: CONJUNCTIVITIS
     Route: 065
     Dates: start: 20160527, end: 201606
  41. LOPERAMIDE [Concomitant]
     Active Substance: LOPERAMIDE
     Route: 065
     Dates: start: 20160528, end: 20160602
  42. MAGNESIUM SULPHATE [Concomitant]
     Active Substance: MAGNESIUM SULFATE
     Indication: PREMEDICATION
     Route: 065
     Dates: start: 20151106, end: 20151106
  43. PIRITON [Concomitant]
     Active Substance: CHLORPHENIRAMINE MALEATE
     Route: 065
     Dates: start: 20160212, end: 20160212
  44. CALCIUM GLUCONATE. [Concomitant]
     Active Substance: CALCIUM GLUCONATE
     Route: 065
     Dates: start: 20151224, end: 20151224
  45. CALCIUM GLUCONATE. [Concomitant]
     Active Substance: CALCIUM GLUCONATE
     Route: 065
     Dates: start: 20160114, end: 20160114
  46. DEXAMETHASONE. [Concomitant]
     Active Substance: DEXAMETHASONE
     Route: 065
     Dates: start: 20160213, end: 20160215
  47. DEXAMETHASONE. [Concomitant]
     Active Substance: DEXAMETHASONE
     Route: 065
     Dates: start: 20160229, end: 20160229
  48. LOPERAMIDE [Concomitant]
     Active Substance: LOPERAMIDE
     Route: 065
     Dates: start: 20160130, end: 20160131
  49. PIRITON [Concomitant]
     Active Substance: CHLORPHENIRAMINE MALEATE
     Route: 065
     Dates: start: 20160129, end: 20160129
  50. PREDNISOLONE. [Concomitant]
     Active Substance: PREDNISOLONE
     Indication: DIARRHOEA
     Route: 065
     Dates: start: 20160514, end: 20160520
  51. DEXAMETHASONE. [Concomitant]
     Active Substance: DEXAMETHASONE
     Route: 065
     Dates: start: 20151106, end: 20151108
  52. DEXAMETHASONE. [Concomitant]
     Active Substance: DEXAMETHASONE
     Route: 065
     Dates: start: 20151211, end: 20151211
  53. DEXAMETHASONE. [Concomitant]
     Active Substance: DEXAMETHASONE
     Route: 065
     Dates: start: 20151212, end: 20151214
  54. DEXAMETHASONE. [Concomitant]
     Active Substance: DEXAMETHASONE
     Route: 065
     Dates: start: 20160115, end: 20160117
  55. DIFFLAM [Concomitant]
     Active Substance: BENZYDAMINE HYDROCHLORIDE
     Indication: OROPHARYNGEAL PAIN
     Route: 050
     Dates: start: 20160722
  56. DOMPERIDONE [Concomitant]
     Active Substance: DOMPERIDONE
     Route: 065
     Dates: start: 20160402, end: 20160406
  57. GELCLAIR (UNITED KINGDOM) [Concomitant]
     Indication: MUCOSAL INFLAMMATION
     Route: 065
     Dates: start: 201511
  58. GELCLAIR (UNITED KINGDOM) [Concomitant]
     Indication: OROPHARYNGEAL PAIN
     Route: 065
     Dates: start: 20160722, end: 20160802
  59. GRANISETRON [Concomitant]
     Active Substance: GRANISETRON
     Route: 065
     Dates: start: 20151120, end: 20151120
  60. GRANISETRON [Concomitant]
     Active Substance: GRANISETRON
     Route: 065
     Dates: start: 20160229, end: 20160229
  61. HYDROCORTISON [Concomitant]
     Active Substance: HYDROCORTISONE
     Route: 065
     Dates: start: 20160212, end: 20160212
  62. LOPERAMIDE [Concomitant]
     Active Substance: LOPERAMIDE
     Route: 065
     Dates: start: 20151106, end: 20151110
  63. MAGNESIUM SULPHATE [Concomitant]
     Active Substance: MAGNESIUM SULFATE
     Route: 065
     Dates: start: 20160212, end: 20160212
  64. MAGNESIUM SULPHATE [Concomitant]
     Active Substance: MAGNESIUM SULFATE
     Route: 065
     Dates: start: 20160129, end: 20160129
  65. DEXAMETHASONE. [Concomitant]
     Active Substance: DEXAMETHASONE
     Route: 065
     Dates: start: 20151121, end: 20151123
  66. DEXAMETHASONE. [Concomitant]
     Active Substance: DEXAMETHASONE
     Route: 065
     Dates: start: 20160129, end: 20160129
  67. DOMPERIDONE [Concomitant]
     Active Substance: DOMPERIDONE
     Route: 065
     Dates: start: 20160528, end: 20160601
  68. DOMPERIDONE [Concomitant]
     Active Substance: DOMPERIDONE
     Route: 065
     Dates: start: 20160130, end: 20160201
  69. GRANISETRON [Concomitant]
     Active Substance: GRANISETRON
     Route: 065
     Dates: start: 20160114, end: 20160114
  70. HYDROCORTISON [Concomitant]
     Active Substance: HYDROCORTISONE
     Route: 065
     Dates: start: 20160114, end: 20160114
  71. LOPERAMIDE [Concomitant]
     Active Substance: LOPERAMIDE
     Route: 065
     Dates: start: 20160402
  72. LOPERAMIDE [Concomitant]
     Active Substance: LOPERAMIDE
     Route: 065
     Dates: start: 20151121, end: 20151124
  73. PIRITON [Concomitant]
     Active Substance: CHLORPHENIRAMINE MALEATE
     Route: 065
     Dates: start: 20160114, end: 20160114
  74. BEVACIZUMAB. [Suspect]
     Active Substance: BEVACIZUMAB
     Indication: COLORECTAL CANCER METASTATIC
     Dosage: MOST RECENT DOSE 500 MG OF BEVACIZUMAB  WAS ADMINISTERED ON 27/MAY/2016 AT 14 30 HOUR  PRIOR TO AE O
     Route: 042
     Dates: start: 20151106
  75. CALCIUM GLUCONATE. [Concomitant]
     Active Substance: CALCIUM GLUCONATE
     Indication: PREMEDICATION
     Route: 065
     Dates: start: 20151106, end: 20151106
  76. CALCIUM GLUCONATE. [Concomitant]
     Active Substance: CALCIUM GLUCONATE
     Route: 065
     Dates: start: 20160129, end: 20160129
  77. DEXAMETHASONE. [Concomitant]
     Active Substance: DEXAMETHASONE
     Route: 065
     Dates: start: 20160114, end: 20160114
  78. GRANISETRON [Concomitant]
     Active Substance: GRANISETRON
     Indication: PREMEDICATION
     Route: 065
     Dates: start: 20151106, end: 20151106
  79. MAGNESIUM SULPHATE [Concomitant]
     Active Substance: MAGNESIUM SULFATE
     Route: 065
     Dates: start: 20151211, end: 20151211
  80. MAGNESIUM SULPHATE [Concomitant]
     Active Substance: MAGNESIUM SULFATE
     Route: 065
     Dates: start: 20151120, end: 20151120
  81. PIRITON [Concomitant]
     Active Substance: CHLORPHENIRAMINE MALEATE
     Indication: VISION BLURRED
     Route: 065
     Dates: start: 20151224
  82. PIRITON [Concomitant]
     Active Substance: CHLORPHENIRAMINE MALEATE
     Indication: PREMEDICATION
     Route: 065
     Dates: start: 20160229, end: 20160229

REACTIONS (2)
  - Blood triglycerides increased [Recovered/Resolved]
  - Blood lactate dehydrogenase increased [Recovered/Resolved]

NARRATIVE: CASE EVENT DATE: 20160623
